FAERS Safety Report 7104211-6 (Version None)
Quarter: 2010Q4

REPORT INFORMATION
  Report Type: 
  Country: None (occurrence: None)
  Receive Date: 20101115
  Receipt Date: 20100608
  Transmission Date: 20110411
  Serious: No
  Sender: FDA-Public Use
  Company Number: US-ALLERGAN-1007492US

PATIENT
  Sex: Female

DRUGS (9)
  1. BOTOX COSMETIC [Suspect]
     Indication: SKIN WRINKLING
     Dosage: UNK
     Route: 030
     Dates: start: 20100525, end: 20100525
  2. JUVEDERM [Concomitant]
  3. LUNESTA [Concomitant]
  4. CONCERTA [Concomitant]
  5. MULTI-VITAMIN [Concomitant]
  6. CALCIUM [Concomitant]
  7. GARLIC [Concomitant]
  8. ASCORBIC ACID [Concomitant]
  9. CRANBERRY [Concomitant]

REACTIONS (5)
  - ACNE [None]
  - ARTHRALGIA [None]
  - ERYTHEMA [None]
  - PRURITUS [None]
  - RASH [None]
